FAERS Safety Report 5636134-3 (Version None)
Quarter: 2008Q1

REPORT INFORMATION
  Report Type: 
  Country: None (occurrence: None)
  Receive Date: 20080225
  Receipt Date: 20080219
  Transmission Date: 20080703
  Serious: No
  Sender: FDA-Public Use
  Company Number: US-JNJFOC-20080205128

PATIENT
  Age: 45 Year
  Sex: Female

DRUGS (1)
  1. INVEGA [Suspect]
     Indication: BIPOLAR DISORDER
     Route: 048

REACTIONS (3)
  - BLOOD PRESSURE FLUCTUATION [None]
  - BRADYPHRENIA [None]
  - ORTHOSTATIC HYPOTENSION [None]
